FAERS Safety Report 5745765-1 (Version None)
Quarter: 2008Q2

REPORT INFORMATION
  Report Type: 
  Country: None (occurrence: None)
  Receive Date: 20080519
  Receipt Date: 20080305
  Transmission Date: 20081010
  Serious: No
  Sender: FDA-Public Use
  Company Number: TPA2008A00284

PATIENT
  Sex: Female

DRUGS (2)
  1. ROZEREM [Suspect]
     Indication: INITIAL INSOMNIA
     Dosage: 8 MG, 30 MINUTES BEFORE BEDTIME, PER ORAL
     Route: 048
     Dates: start: 20080304
  2. XANAX [Suspect]
     Dosage: 1 MG, PER ORAL
     Route: 048

REACTIONS (4)
  - FATIGUE [None]
  - INITIAL INSOMNIA [None]
  - MIDDLE INSOMNIA [None]
  - POOR QUALITY SLEEP [None]
